FAERS Safety Report 9067393 (Version 1)
Quarter: 2013Q1

REPORT INFORMATION
  Report Type: Spontaneous
  Country: US (occurrence: US)
  Receive Date: 20130129
  Receipt Date: 20130129
  Transmission Date: 20140127
  Serious: No
  Sender: FDA-Public Use
  Company Number: US-BAYER-2013-010666

PATIENT
  Sex: Female
  Weight: 50 kg

DRUGS (12)
  1. BETASERON [Suspect]
  2. ZETIA [Concomitant]
  3. ZANTAC [Concomitant]
  4. PRAVASTATIN [Concomitant]
  5. AMPYRA [Concomitant]
  6. MIRAPEX [Concomitant]
  7. ACTONEL [Concomitant]
  8. METHADONE [Concomitant]
  9. FLUOXETINE [Concomitant]
  10. BACLOFEN [Concomitant]
  11. COREG [Concomitant]
  12. DITROPAN [Concomitant]

REACTIONS (1)
  - Drug ineffective [None]
